FAERS Safety Report 14846126 (Version 1)
Quarter: 2018Q2

REPORT INFORMATION
  Report Type: Spontaneous
  Country: DE (occurrence: DE)
  Receive Date: 20180504
  Receipt Date: 20180504
  Transmission Date: 20180711
  Serious: Yes (Death, Hospitalization)
  Sender: FDA-Public Use
  Company Number: PHHY2015DE177729

PATIENT
  Sex: Male
  Weight: 73 kg

DRUGS (23)
  1. 5-FLUOROURACIL [Suspect]
     Active Substance: FLUOROURACIL
     Dosage: 1700 MG, QW (1000 MG/M2)
     Route: 041
     Dates: start: 20151125
  2. IRINOTECAN [Suspect]
     Active Substance: IRINOTECAN
     Indication: COLORECTAL CANCER
     Dosage: 136 MG, QD
     Route: 042
     Dates: start: 20150108, end: 20150115
  3. BISOPROLOL [Concomitant]
     Active Substance: BISOPROLOL
     Indication: HYPERTENSION
     Dosage: 2.5 MG, UNK
     Route: 048
  4. MONO-EMBOLEX [Concomitant]
     Active Substance: CERTOPARIN SODIUM
     Indication: DEEP VEIN THROMBOSIS
     Dosage: 16000 IU, QD
     Route: 058
     Dates: start: 20141104
  5. TAMSUBLOCK [Concomitant]
     Active Substance: TAMSULOSIN HYDROCHLORIDE
     Indication: BENIGN PROSTATIC HYPERPLASIA
     Dosage: 0.4 MG, QD
     Route: 048
     Dates: start: 20141111
  6. FOLINIC ACID [Suspect]
     Active Substance: LEUCOVORIN
     Dosage: 340 MG, UNK
     Route: 042
  7. AVASTIN [Suspect]
     Active Substance: BEVACIZUMAB
     Dosage: 365 MG, QW2
     Route: 042
     Dates: start: 20151214
  8. AVASTIN [Suspect]
     Active Substance: BEVACIZUMAB
     Dosage: 365 MG, UNK
     Route: 042
     Dates: start: 20160317
  9. L-THYROXIN [Concomitant]
     Active Substance: LEVOTHYROXINE SODIUM
     Indication: HYPOTHYROIDISM
     Dosage: 25 UG, QD
     Route: 048
  10. OXALIPLATIN. [Suspect]
     Active Substance: OXALIPLATIN
     Indication: COLORECTAL CANCER
     Dosage: 85 MG, QD
     Route: 042
     Dates: start: 20150324
  11. OXALIPLATIN. [Suspect]
     Active Substance: OXALIPLATIN
     Dosage: 85 MG, QD
     Route: 042
     Dates: start: 20150608
  12. 5-FLUOROURACIL [Suspect]
     Active Substance: FLUOROURACIL
     Indication: COLORECTAL CANCER
     Dosage: 3400 MG, UNK
     Route: 042
     Dates: start: 20141113, end: 20150608
  13. IRINOTECAN [Suspect]
     Active Substance: IRINOTECAN
     Dosage: 102 MG, UNK
     Route: 042
     Dates: start: 20150924
  14. IRINOTECAN [Suspect]
     Active Substance: IRINOTECAN
     Dosage: 102 MG, UNK
     Route: 042
     Dates: start: 20151029
  15. AVASTIN [Suspect]
     Active Substance: BEVACIZUMAB
     Indication: COLORECTAL CANCER METASTATIC
     Dosage: 5 MG/KG, QW2
     Route: 042
     Dates: start: 20141127, end: 20151022
  16. AVASTIN [Suspect]
     Active Substance: BEVACIZUMAB
     Dosage: 365 MG, QW2
     Route: 042
     Dates: start: 20160415
  17. FOLINIC ACID [Suspect]
     Active Substance: LEUCOVORIN
     Indication: COLORECTAL CANCER
     Dosage: 850 MG, QD
     Route: 042
     Dates: start: 20141113, end: 20150608
  18. IRINOTECAN [Suspect]
     Active Substance: IRINOTECAN
     Dosage: 50 MG/M2
     Route: 042
     Dates: start: 20151125
  19. CITALOPRAM [Concomitant]
     Active Substance: CITALOPRAM HYDROBROMIDE
     Indication: ANXIETY DISORDER
  20. BISOPROLOL [Concomitant]
     Active Substance: BISOPROLOL
     Dosage: 1.25 MG, QD
     Route: 048
  21. ASS LIGHT 100 [Concomitant]
     Indication: CEREBROVASCULAR DISORDER
     Dosage: 100 MG, QD
     Route: 048
  22. CITALOPRAM [Concomitant]
     Active Substance: CITALOPRAM HYDROBROMIDE
     Indication: SLEEP DISORDER
     Dosage: 10 MG, QD
     Route: 048
     Dates: start: 20150623
  23. L-THYROXIN [Concomitant]
     Active Substance: LEVOTHYROXINE SODIUM
     Dosage: 50 UG, UNK
     Route: 048

REACTIONS (33)
  - Dizziness [Recovered/Resolved]
  - Abdominal pain lower [Recovered/Resolved]
  - Cholestasis [Recovered/Resolved]
  - Proteinuria [Recovered/Resolved]
  - Circulatory collapse [Recovered/Resolved]
  - Systemic inflammatory response syndrome [Recovered/Resolved]
  - Klebsiella bacteraemia [Recovered/Resolved]
  - Anaemia of malignant disease [Recovered/Resolved]
  - Chills [Recovered/Resolved]
  - Salivary hypersecretion [Recovered/Resolved]
  - Diarrhoea [Recovered/Resolved]
  - Ascites [Recovered/Resolved]
  - Hypertension [Recovered/Resolved]
  - Syncope [Recovered/Resolved]
  - Pain [Recovered/Resolved]
  - Polyneuropathy [Recovered/Resolved]
  - Cachexia [Recovered/Resolved]
  - Tachycardia [Recovered/Resolved]
  - Haemoglobin decreased [Recovered/Resolved]
  - Fatigue [Recovered/Resolved]
  - Polyneuropathy [Recovered/Resolved]
  - Metastases to liver [Recovered/Resolved]
  - General physical health deterioration [Recovered/Resolved]
  - Fatigue [Recovered/Resolved]
  - Diarrhoea [Recovered/Resolved]
  - Diarrhoea [Recovered/Resolved]
  - Atrial flutter [Recovered/Resolved]
  - Dehydration [Recovered/Resolved]
  - Diarrhoea [Recovered/Resolved]
  - Abdominal pain [Recovered/Resolved]
  - Tachycardia [Recovered/Resolved]
  - Fatigue [Recovered/Resolved]
  - Diarrhoea [Recovered/Resolved]

NARRATIVE: CASE EVENT DATE: 20141113
